FAERS Safety Report 5955399-1 (Version None)
Quarter: 2008Q4

REPORT INFORMATION
  Report Type: 
  Country: None (occurrence: None)
  Receive Date: 20081113
  Receipt Date: 20081103
  Transmission Date: 20090506
  Serious: Yes (Congenital Anomaly, Other)
  Sender: FDA-Public Use
  Company Number: GXKR2008GB10499

PATIENT
  Sex: Female

DRUGS (4)
  1. MIRTAZAPINE [Suspect]
     Dosage: TRANSPLACENTAL
     Route: 064
  2. PROPRANOLOL [Suspect]
     Dosage: TRANSPLACENTAL
     Route: 064
  3. URSODIOL [Concomitant]
  4. PHYTONADIONE [Concomitant]

REACTIONS (4)
  - CAESAREAN SECTION [None]
  - CIRCULATORY COLLAPSE [None]
  - MATERNAL DRUGS AFFECTING FOETUS [None]
  - TRANSPOSITION OF THE GREAT VESSELS [None]
